FAERS Safety Report 9496827 (Version 1)
Quarter: 2013Q3

REPORT INFORMATION
  Report Type: Spontaneous
  Country: SA (occurrence: None)
  Receive Date: 20130830
  Receipt Date: 20130830
  Transmission Date: 20140515
  Serious: Yes (Hospitalization)
  Sender: FDA-Public Use
  Company Number: 7232024

PATIENT
  Age: 37 Year
  Sex: Female

DRUGS (3)
  1. LEVOTHYROXINE [Suspect]
  2. CALCITRIOL (CALCITRIOL) (CALCITRIOL) [Suspect]
     Indication: PRODUCT USED FOR UNKNOWN INDICATION
  3. CALCIUM (CALCIUM) (CALCIUM) [Suspect]
     Indication: PRODUCT USED FOR UNKNOWN INDICATION

REACTIONS (4)
  - Hungry bone syndrome [None]
  - Hypoaesthesia [None]
  - Maternal exposure during pregnancy [None]
  - Paraesthesia [None]
